FAERS Safety Report 5001683-8 (Version None)
Quarter: 2006Q2

REPORT INFORMATION
  Report Type: 
  Country: None (occurrence: None)
  Receive Date: 20060511
  Receipt Date: 20060511
  Transmission Date: 20061013
  Serious: Yes (Life-Threatening)
  Sender: FDA-Public Use
  Company Number: None

PATIENT
  Age: 50 Year
  Sex: Male

DRUGS (4)
  1. OXYCODONE AND ACETAMINOPHEN [Suspect]
     Indication: BACK PAIN
     Dosage: 10MG QID
     Dates: start: 20031211
  2. OXYCODONE AND ACETAMINOPHEN [Suspect]
     Indication: JOINT DISLOCATION
     Dosage: 10MG QID
     Dates: start: 20031211
  3. XANAX [Concomitant]
  4. SOMA [Concomitant]

REACTIONS (4)
  - DYSPNOEA [None]
  - PHARMACEUTICAL PRODUCT COMPLAINT [None]
  - PRURITUS [None]
  - URTICARIA [None]
